FAERS Safety Report 5447445-9 (Version None)
Quarter: 2007Q3

REPORT INFORMATION
  Report Type: 
  Country: None (occurrence: None)
  Receive Date: 20070910
  Receipt Date: 20070831
  Transmission Date: 20080115
  Serious: Yes (Death)
  Sender: FDA-Public Use
  Company Number: US-AMGEN-US241736

PATIENT
  Sex: Female
  Weight: 72.6 kg

DRUGS (2)
  1. PROCRIT [Suspect]
     Indication: RENAL FAILURE CHRONIC
     Route: 058
     Dates: start: 20070701, end: 20070822
  2. UNSPECIFIED MEDICATION [Concomitant]

REACTIONS (1)
  - RENAL FAILURE [None]
